FAERS Safety Report 25706902 (Version 1)
Quarter: 2025Q3

REPORT INFORMATION
  Report Type: Spontaneous
  Country: US (occurrence: US)
  Receive Date: 20250820
  Receipt Date: 20250820
  Transmission Date: 20251020
  Serious: No
  Sender: SANOFI AVENTIS
  Company Number: US-SA-2025SA248065

PATIENT
  Age: 9 Year
  Sex: Male

DRUGS (5)
  1. DUPIXENT [Suspect]
     Active Substance: DUPILUMAB
     Indication: Asthma
     Route: 058
  2. XOLAIR [Suspect]
     Active Substance: OMALIZUMAB
     Indication: Abdominal pain upper
  3. XOLAIR [Suspect]
     Active Substance: OMALIZUMAB
     Indication: Malaise
  4. XOLAIR [Suspect]
     Active Substance: OMALIZUMAB
     Indication: Gastritis
  5. XOLAIR [Suspect]
     Active Substance: OMALIZUMAB
     Indication: Neck pain

REACTIONS (4)
  - Abdominal pain upper [Unknown]
  - Malaise [Unknown]
  - Gastritis [Unknown]
  - Neck pain [Recovered/Resolved]

NARRATIVE: CASE EVENT DATE: 20250809
